FAERS Safety Report 13099541 (Version 1)
Quarter: 2017Q1

REPORT INFORMATION
  Report Type: Spontaneous
  Country: FR (occurrence: FR)
  Receive Date: 20170109
  Receipt Date: 20170109
  Transmission Date: 20170428
  Serious: Yes (Other)
  Sender: FDA-Public Use
  Company Number: FR-009507513-1701FRA001389

PATIENT
  Age: 69 Year
  Sex: Male

DRUGS (1)
  1. KEYTRUDA [Suspect]
     Active Substance: PEMBROLIZUMAB
     Indication: MALIGNANT MELANOMA
     Dosage: 114 MG, UNK
     Route: 042
     Dates: start: 20150925, end: 20160429

REACTIONS (6)
  - Xerophthalmia [Recovered/Resolved]
  - Weight decreased [Unknown]
  - Dry mouth [Recovering/Resolving]
  - Myalgia [Recovering/Resolving]
  - Mitochondrial cytopathy [Not Recovered/Not Resolved]
  - Sjogren^s syndrome [Recovering/Resolving]

NARRATIVE: CASE EVENT DATE: 20151218
